FAERS Safety Report 5862978-9 (Version None)
Quarter: 2008Q3

REPORT INFORMATION
  Report Type: 
  Country: None (occurrence: None)
  Receive Date: 20080828
  Receipt Date: 20080821
  Transmission Date: 20090109
  Serious: Yes (Other)
  Sender: FDA-Public Use
  Company Number: B0534016A

PATIENT
  Age: 60 Year
  Sex: Female
  Weight: 73 kg

DRUGS (5)
  1. ROSIGLITAZONE [Suspect]
     Route: 048
     Dates: start: 20070608, end: 20080530
  2. GLICLAZIDE [Concomitant]
     Route: 048
     Dates: start: 20010101
  3. METFORMIN HCL [Concomitant]
     Route: 048
     Dates: start: 20010101
  4. BENDROFLUAZIDE [Concomitant]
     Indication: HYPERTENSION
     Route: 048
  5. PROCYCLIDINE HYDROCHLORIDE 2MG TAB [Concomitant]
     Route: 048

REACTIONS (3)
  - ANKLE FRACTURE [None]
  - FALL [None]
  - WRIST FRACTURE [None]
